FAERS Safety Report 5638382-5 (Version None)
Quarter: 2008Q1

REPORT INFORMATION
  Report Type: 
  Country: None (occurrence: None)
  Receive Date: 20080222
  Receipt Date: 20080214
  Transmission Date: 20080703
  Serious: Yes (Hospitalization)
  Sender: FDA-Public Use
  Company Number: GXKR2008SE01756

PATIENT
  Age: 84 Year
  Sex: Male

DRUGS (8)
  1. RIFAMPICIN [Suspect]
     Indication: INFECTION
     Dosage: 600 MG, ORAL
     Route: 048
     Dates: start: 20061001, end: 20070123
  2. ESOMPERAZOLE (ESOMPERAZOLE) GASTRO-RESISTANT TABLET [Concomitant]
  3. PARACETAMOL (PRACETAMOL) [Concomitant]
  4. BENDROFLUMETHIAZIDE (BENDROFLUMETHAZIDE) [Concomitant]
  5. FERROUS SULPHATE (FERROUS SULFATE) [Concomitant]
  6. FLUCOXACILLIN (FLUCOXACILLIN) FILM-COATED TABLET [Concomitant]
  7. ATENOLOL (ATENOLOL) FILM-COATED TABLET [Concomitant]
  8. ACETYLSALICYLIC ACID (ACETYLSALICYLIC ACID) TABLET [Concomitant]

REACTIONS (6)
  - DEPRESSED MOOD [None]
  - ENCEPHALOPATHY [None]
  - HEADACHE [None]
  - PERSONALITY CHANGE [None]
  - PHOTOSENSITIVITY REACTION [None]
  - VASCULAR DEMENTIA [None]
